FAERS Safety Report 12994783 (Version 1)
Quarter: 2016Q4

REPORT INFORMATION
  Report Type: Spontaneous
  Country: GB (occurrence: GB)
  Receive Date: 20161202
  Receipt Date: 20161202
  Transmission Date: 20170207
  Serious: Yes (Hospitalization, Other)
  Sender: FDA-Public Use
  Company Number: GB-CANTON LABORATORIES, LLC-1060335

PATIENT
  Age: 70 Year
  Sex: Male

DRUGS (2)
  1. METHOTREXATE SODIUM. [Suspect]
     Active Substance: METHOTREXATE SODIUM
     Route: 048
     Dates: start: 19860101
  2. NAPROSYN [Suspect]
     Active Substance: NAPROXEN
     Indication: PRODUCT USED FOR UNKNOWN INDICATION

REACTIONS (3)
  - Drug interaction [Unknown]
  - Pyelonephritis [Unknown]
  - Immunosuppression [Recovering/Resolving]
